FAERS Safety Report 9177418 (Version 1)
Quarter: 2013Q1

REPORT INFORMATION
  Report Type: Spontaneous
  Country: GB (occurrence: None)
  Receive Date: 20130319
  Receipt Date: 20130319
  Transmission Date: 20140127
  Serious: Yes (Disabling)
  Sender: FDA-Public Use
  Company Number: AUR-APL-2013-02207

PATIENT
  Sex: 0

DRUGS (1)
  1. AMOXICILLIN (AMOXICILLIN) [Suspect]
     Indication: INFECTION
     Route: 048
     Dates: start: 20130124, end: 20130125

REACTIONS (2)
  - Renal pain [None]
  - Nephrolithiasis [None]
